FAERS Safety Report 4726841-9 (Version None)
Quarter: 2005Q3

REPORT INFORMATION
  Report Type: 
  Country: None (occurrence: None)
  Receive Date: 20050726
  Receipt Date: 20050720
  Transmission Date: 20060218
  Serious: Yes (Other)
  Sender: FDA-Public Use
  Company Number: CLOF-10023

PATIENT
  Age: 75 Year
  Sex: Female

DRUGS (10)
  1. CLOFARABINE [Suspect]
     Indication: ACUTE MYELOID LEUKAEMIA
     Dosage: 58 MG QD X 5 IV
     Route: 042
     Dates: start: 20050602, end: 20050606
  2. METOCLOPRAMIDE [Concomitant]
  3. METFORMIN [Concomitant]
  4. THYRODINE [Concomitant]
  5. ENALAPRIL MALEATE [Concomitant]
  6. ATORVASTATIN CALCIUM [Concomitant]
  7. LANSOPRAZOLE [Concomitant]
  8. ALLOPURINOL [Concomitant]
  9. ONDANSETRON [Concomitant]
  10. LORPERAMIDE [Concomitant]

REACTIONS (1)
  - RENAL FAILURE ACUTE [None]
